FAERS Safety Report 4740742-1 (Version None)
Quarter: 2005Q3

REPORT INFORMATION
  Report Type: 
  Country: None (occurrence: None)
  Receive Date: 20050810
  Receipt Date: 20050729
  Transmission Date: 20060218
  Serious: Yes (Disabling)
  Sender: FDA-Public Use
  Company Number: CH-JNJFOC-20050801029

PATIENT
  Age: 17 Year
  Sex: Female
  Weight: 60 kg

DRUGS (3)
  1. TOPAMAX [Suspect]
     Indication: MIGRAINE PROPHYLAXIS
     Route: 048
     Dates: start: 20050314, end: 20050419
  2. ZOMIG [Concomitant]
     Indication: MIGRAINE
     Route: 065
  3. PONSTAN [Concomitant]
     Indication: MIGRAINE
     Route: 048

REACTIONS (4)
  - ANOREXIA NERVOSA [None]
  - DEPRESSION [None]
  - PERONEAL NERVE INJURY [None]
  - WEIGHT DECREASED [None]
